FAERS Safety Report 25871506 (Version 2)
Quarter: 2025Q4

REPORT INFORMATION
  Report Type: Spontaneous
  Country: US (occurrence: US)
  Receive Date: 20251001
  Receipt Date: 20251107
  Transmission Date: 20260119
  Serious: No
  Sender: KALEO, INC.
  Company Number: US-KALEO, INC.-2025KL000014

PATIENT

DRUGS (2)
  1. AUVI-Q [Suspect]
     Active Substance: EPINEPHRINE
     Indication: Anaphylactic reaction
     Dosage: 0.15 MILLIGRAM
     Route: 058
     Dates: start: 20250420, end: 20250420
  2. AUVI-Q [Suspect]
     Active Substance: EPINEPHRINE
     Dosage: 0.15 MILLIGRAM
     Route: 058
     Dates: start: 20250420, end: 20250420

REACTIONS (5)
  - Depressed level of consciousness [Unknown]
  - Vomiting [Unknown]
  - Dyspnoea [Unknown]
  - Lethargy [Unknown]
  - Drug ineffective [Recovered/Resolved]

NARRATIVE: CASE EVENT DATE: 20250420
